FAERS Safety Report 21552590 (Version 1)
Quarter: 2022Q4

REPORT INFORMATION
  Report Type: Report from Study
  Country: US (occurrence: US)
  Receive Date: 20221104
  Receipt Date: 20221104
  Transmission Date: 20230112
  Serious: No
  Sender: FDA-Public Use
  Company Number: US-ABBVIE-4177018

PATIENT
  Sex: Male

DRUGS (2)
  1. CARBIDOPA\LEVODOPA [Suspect]
     Active Substance: CARBIDOPA\LEVODOPA
     Indication: Product used for unknown indication
     Dates: start: 20200630
  2. CARBIDOPA\LEVODOPA [Suspect]
     Active Substance: CARBIDOPA\LEVODOPA

REACTIONS (10)
  - Surgery [Unknown]
  - Device issue [Not Recovered/Not Resolved]
  - Medical device site haemorrhage [Unknown]
  - Pain [Unknown]
  - Weight decreased [Unknown]
  - Purulence [Unknown]
  - Excessive skin [Unknown]
  - Erythema [Unknown]
  - Abdominal pain upper [Unknown]
  - Device allergy [Unknown]
